FAERS Safety Report 16820045 (Version 2)
Quarter: 2019Q3

REPORT INFORMATION
  Report Type: Spontaneous
  Country: DK (occurrence: DK)
  Receive Date: 20190918
  Receipt Date: 20190920
  Transmission Date: 20191005
  Serious: Yes (Death, Other)
  Sender: FDA-Public Use
  Company Number: DK-ALEXION PHARMACEUTICALS INC.-A201912952

PATIENT
  Age: 5 Year
  Sex: Male
  Weight: 23.7 kg

DRUGS (2)
  1. SOLIRIS [Suspect]
     Active Substance: ECULIZUMAB
     Indication: OFF LABEL USE
  2. SOLIRIS [Suspect]
     Active Substance: ECULIZUMAB
     Indication: HAEMOLYTIC URAEMIC SYNDROME
     Dosage: 600 MG, SINGLE
     Route: 042
     Dates: start: 20190821, end: 20190821

REACTIONS (3)
  - Intracranial pressure increased [Fatal]
  - Incarcerated hernia [Fatal]
  - Off label use [Unknown]

NARRATIVE: CASE EVENT DATE: 20190821
